FAERS Safety Report 4339012-5 (Version None)
Quarter: 2004Q2

REPORT INFORMATION
  Report Type: 
  Country: None (occurrence: None)
  Receive Date: 20040409
  Receipt Date: 20040329
  Transmission Date: 20050107
  Serious: Yes (Hospitalization)
  Sender: FDA-Public Use
  Company Number: LBID00204000881

PATIENT
  Age: 68 Year
  Sex: Male
  Weight: 72 kg

DRUGS (6)
  1. LITHIUM CARBONATE [Suspect]
     Indication: DEPRESSION
     Dosage: 300 MG TID PO
  2. ATENOLOL [Concomitant]
  3. CARVEDILOL [Concomitant]
  4. AMLODIPINE [Concomitant]
  5. NITRATES (NITRATES) [Concomitant]
  6. ASPIRIN [Concomitant]

REACTIONS (2)
  - CORONARY ARTERY SURGERY [None]
  - PROCEDURAL HYPOTENSION [None]
